FAERS Safety Report 8843616 (Version 2)
Quarter: 2015Q3

REPORT INFORMATION
  Report Type: Report from Study
  Country: US (occurrence: US)
  Receive Date: 20121016
  Receipt Date: 20150817
  Transmission Date: 20151125
  Serious: Yes (Hospitalization)
  Sender: FDA-Public Use
  Company Number: US-ROCHE-GNE091095

PATIENT
  Age: 2 Year
  Sex: Female
  Weight: 10.21 kg

DRUGS (2)
  1. NUTROPIN AQ [Suspect]
     Active Substance: SOMATROPIN
     Indication: TURNER^S SYNDROME
     Route: 058
     Dates: start: 19980513, end: 19980624
  2. NUTROPIN AQ [Suspect]
     Active Substance: SOMATROPIN
     Route: 058

REACTIONS (8)
  - Influenza like illness [Unknown]
  - Papilloedema [Unknown]
  - Vomiting [Recovered/Resolved]
  - Nausea [Unknown]
  - Headache [Unknown]
  - Hyperglycaemia [Unknown]
  - Asthenia [Unknown]
  - Dehydration [Unknown]

NARRATIVE: CASE EVENT DATE: 19980621
